FAERS Safety Report 10257619 (Version 1)
Quarter: 2014Q2

REPORT INFORMATION
  Report Type: Spontaneous
  Country: DK (occurrence: None)
  Receive Date: 20140620
  Receipt Date: 20140620
  Transmission Date: 20141212
  Serious: Yes (Disabling)
  Sender: FDA-Public Use
  Company Number: 2392606

PATIENT
  Age: 60 Year
  Sex: Female

DRUGS (3)
  1. EPIRUBICIN HYDROCHLORIDE [Suspect]
     Indication: CHEMOTHERAPY
     Dosage: 1ST CYCLE
     Dates: start: 20101215, end: 20110228
  2. CYCLOPHOSPHAMIDE [Suspect]
     Indication: CHEMOTHERAPY
     Dosage: 1ST CYCLE
     Dates: start: 20101215, end: 20110228
  3. DOCETAXEL [Suspect]
     Indication: CHEMOTHERAPY
     Dates: start: 2011

REACTIONS (4)
  - Ageusia [None]
  - Anosmia [None]
  - Nerve injury [None]
  - Drug ineffective [None]
